FAERS Safety Report 13877728 (Version 1)
Quarter: 2017Q3

REPORT INFORMATION
  Report Type: Report from Study
  Country: FR (occurrence: FR)
  Receive Date: 20170817
  Receipt Date: 20170817
  Transmission Date: 20171127
  Serious: Yes (Hospitalization)
  Sender: FDA-Public Use
  Company Number: PHHY2017FR118324

PATIENT
  Sex: Female

DRUGS (1)
  1. COSENTYX [Suspect]
     Active Substance: SECUKINUMAB
     Indication: PSORIASIS
     Dosage: 300 MG, 4W
     Route: 065
     Dates: start: 20170611

REACTIONS (9)
  - Concomitant disease aggravated [Not Recovered/Not Resolved]
  - Splenomegaly [Unknown]
  - Infection [Unknown]
  - White blood cell count increased [Unknown]
  - C-reactive protein increased [Unknown]
  - Hepatomegaly [Not Recovered/Not Resolved]
  - Gamma-glutamyltransferase increased [Unknown]
  - Injection site haemorrhage [Unknown]
  - Injection site pain [Unknown]
